FAERS Safety Report 10016499 (Version 2)
Quarter: 2014Q2

REPORT INFORMATION
  Report Type: Spontaneous
  Country: JP (occurrence: JP)
  Receive Date: 20140317
  Receipt Date: 20140408
  Transmission Date: 20141212
  Serious: Yes (Other)
  Sender: FDA-Public Use
  Company Number: JP-OTSUKA-JP-2014-12503

PATIENT
  Age: 53 Year
  Sex: Male

DRUGS (3)
  1. SAMSCA [Suspect]
     Indication: OEDEMA DUE TO HEPATIC DISEASE
     Dosage: 7.5 MG MILLIGRAM(S), DAILY DOSE
     Route: 048
  2. LASIX [Concomitant]
     Dosage: 80 MG MILLIGRAM(S), DAILY DOSE
     Route: 065
  3. HUMAN SERUM ALBUMIN [Concomitant]
     Dosage: UNK
     Route: 042

REACTIONS (1)
  - Blood sodium increased [Recovered/Resolved]
